FAERS Safety Report 19224333 (Version 9)
Quarter: 2021Q3

REPORT INFORMATION
  Report Type: Report from Study
  Country: PL (occurrence: PL)
  Receive Date: 20210506
  Receipt Date: 20210804
  Transmission Date: 20211014
  Serious: Yes (Hospitalization)
  Sender: FDA-Public Use
  Company Number: PL-GLAXOSMITHKLINE-PL2021GSK094975

PATIENT
  Age: 73 Year
  Sex: Female

DRUGS (15)
  1. DEXAMETHASONE NON GSK [Suspect]
     Active Substance: DEXAMETHASONE
     Indication: PLASMA CELL MYELOMA
     Dosage: 40 MG OR AT LOWER 20 MG DOSE ONCE WEEKLY (DAYS1,8, 15 AND 22)
     Route: 048
     Dates: start: 20210401
  2. GENSULIN M30 [Concomitant]
     Indication: DIABETES MELLITUS
     Dosage: 22 UNIT, BID
     Route: 058
     Dates: start: 20180101
  3. BISOCARD [Concomitant]
     Active Substance: BISOPROLOL
     Indication: HYPERTENSION
     Dosage: 5 MG, QD
     Route: 048
     Dates: start: 2008
  4. NEOPARIN [Concomitant]
     Active Substance: ENOXAPARIN SODIUM
     Indication: ATRIAL FIBRILLATION
  5. CALPEROS [Concomitant]
     Indication: PROPHYLAXIS
     Dosage: 1000 MG, QD
     Route: 048
     Dates: start: 201710
  6. VIGANTOLETTEN [Concomitant]
     Active Substance: CHOLECALCIFEROL
     Indication: PROPHYLAXIS
     Dosage: 1000 MG, QD
     Route: 048
     Dates: start: 201710
  7. POMALIDOMIDE [Suspect]
     Active Substance: POMALIDOMIDE
     Indication: PLASMA CELL MYELOMA
     Dosage: 4 MG, ON DAYS1 TO 21 OF EACH 28  DAYS CYCLE
     Route: 048
     Dates: start: 20210401, end: 20210419
  8. LYRICA [Concomitant]
     Active Substance: PREGABALIN
     Indication: POLYNEUROPATHY
     Dosage: 150 MG, BID
     Route: 048
     Dates: start: 201902
  9. ALLUPOL [Concomitant]
     Active Substance: ALLOPURINOL
     Indication: METABOLIC DISORDER PROPHYLAXIS
     Dosage: 100 MG, BID
     Route: 048
     Dates: start: 20170213
  10. FUROSEMID [Concomitant]
     Active Substance: FUROSEMIDE
     Indication: VASCULAR DISORDER PROPHYLAXIS
     Dosage: 40 MG, QD
     Route: 048
     Dates: start: 20190101
  11. AMITRIPTYLINE [Concomitant]
     Active Substance: AMITRIPTYLINE
     Indication: POLYNEUROPATHY
     Dosage: 25 MG, QD
     Route: 048
     Dates: start: 201902
  12. NEOPARIN [Concomitant]
     Active Substance: ENOXAPARIN SODIUM
     Indication: THROMBOSIS PROPHYLAXIS
     Dosage: 40 MG, QD
     Route: 048
     Dates: start: 20171001
  13. ANESTELOC [Concomitant]
     Active Substance: PANTOPRAZOLE SODIUM
     Indication: GASTROOESOPHAGEAL REFLUX PROPHYLAXIS
     Dosage: 20 MG, QD
     Route: 048
     Dates: start: 20171001
  14. DIGOXIN. [Concomitant]
     Active Substance: DIGOXIN
     Indication: ATRIAL FIBRILLATION
     Dosage: 0.1 MG FOUR TIMES A WEEK
     Route: 048
     Dates: start: 20150101
  15. KALIPOZ [Concomitant]
     Active Substance: POTASSIUM CHLORIDE
     Indication: METABOLIC DISORDER PROPHYLAXIS
     Dosage: 391 MG, Q4H
     Route: 048
     Dates: start: 20190101

REACTIONS (1)
  - Pancytopenia [Recovered/Resolved]

NARRATIVE: CASE EVENT DATE: 20210420
